FAERS Safety Report 7714496-0 (Version None)
Quarter: 2011Q3

REPORT INFORMATION
  Report Type: 
  Country: None (occurrence: None)
  Receive Date: 20110829
  Receipt Date: 20110817
  Transmission Date: 20111222
  Serious: No
  Sender: FDA-Public Use
  Company Number: JP-JNJFOC-20110306198

PATIENT
  Sex: Male
  Weight: 73 kg

DRUGS (4)
  1. FENTANYL CITRATE [Suspect]
     Indication: PAIN
     Route: 062
     Dates: start: 20100501
  2. HALCION [Interacting]
     Indication: INSOMNIA
     Route: 048
  3. FENTANYL CITRATE [Suspect]
     Indication: BACK PAIN
     Route: 062
     Dates: start: 20100501
  4. HALCION [Interacting]
     Route: 048

REACTIONS (4)
  - INSOMNIA [None]
  - TREATMENT NONCOMPLIANCE [None]
  - DRUG INTERACTION [None]
  - DRUG INEFFECTIVE [None]
